FAERS Safety Report 20604836 (Version 1)
Quarter: 2022Q1

REPORT INFORMATION
  Report Type: Report from Study
  Country: US (occurrence: US)
  Receive Date: 20220317
  Receipt Date: 20220317
  Transmission Date: 20220424
  Serious: Yes (Other)
  Sender: FDA-Public Use
  Company Number: US-ABBVIE-22K-163-4319163-00

PATIENT
  Sex: Male

DRUGS (1)
  1. VENCLEXTA [Suspect]
     Active Substance: VENETOCLAX
     Indication: Acute myeloid leukaemia
     Dosage: WITH FOOD AND FULL GLASS OF WATER AT SAME TIME EACH DAY DO NOT CRUSH OR CHEW TABLET
     Route: 048
     Dates: end: 2022

REACTIONS (1)
  - Hospice care [Unknown]
